FAERS Safety Report 7378793-3 (Version None)
Quarter: 2011Q1

REPORT INFORMATION
  Report Type: 
  Country: None (occurrence: None)
  Receive Date: 20110328
  Receipt Date: 20091109
  Transmission Date: 20110831
  Serious: Yes (Death)
  Sender: FDA-Public Use
  Company Number: PHHY2009NL67765

PATIENT
  Sex: Female

DRUGS (2)
  1. SANDOSTATIN LAR [Suspect]
     Route: 030
     Dates: end: 20090101
  2. SANDOSTATIN LAR [Suspect]
     Dates: start: 20090305, end: 20091001

REACTIONS (1)
  - DEATH [None]
